FAERS Safety Report 5886498-0 (Version None)
Quarter: 2008Q3

REPORT INFORMATION
  Report Type: 
  Country: None (occurrence: None)
  Receive Date: 20080917
  Receipt Date: 20080912
  Transmission Date: 20090109
  Serious: Yes (Other)
  Sender: FDA-Public Use
  Company Number: US-MERCK-0808USA05391

PATIENT
  Age: 81 Year
  Sex: Female

DRUGS (3)
  1. VYTORIN [Concomitant]
     Route: 048
  2. ZETIA [Suspect]
     Route: 048
     Dates: start: 20060301, end: 20080101
  3. ZETIA [Suspect]
     Route: 048
     Dates: end: 20080101

REACTIONS (1)
  - PANCREATIC CARCINOMA [None]
